FAERS Safety Report 9503515 (Version 1)
Quarter: 2013Q3

REPORT INFORMATION
  Report Type: Spontaneous
  Country: RU (occurrence: RU)
  Receive Date: 20130906
  Receipt Date: 20130906
  Transmission Date: 20140515
  Serious: Yes (Hospitalization)
  Sender: FDA-Public Use
  Company Number: RU-TEVA-429842ISR

PATIENT
  Age: 60 Year
  Sex: Male

DRUGS (1)
  1. EQUORQL [Suspect]

REACTIONS (3)
  - Chest pain [Recovering/Resolving]
  - Abdominal pain [Recovering/Resolving]
  - Hypotension [Recovering/Resolving]
